FAERS Safety Report 6074351-1 (Version None)
Quarter: 2009Q1

REPORT INFORMATION
  Report Type: 
  Country: None (occurrence: None)
  Receive Date: 20090211
  Receipt Date: 20090204
  Transmission Date: 20090719
  Serious: No
  Sender: FDA-Public Use
  Company Number: US-B.I. PHARMACEUTICALS,INC./RIDGEFIELD-2009-BP-00450BP

PATIENT
  Sex: Female

DRUGS (9)
  1. COMBIVENT [Suspect]
     Indication: CHRONIC OBSTRUCTIVE PULMONARY DISEASE
     Dosage: 8PUF
     Dates: start: 19990701
  2. COMBIVENT [Suspect]
     Indication: LUNG NEOPLASM MALIGNANT
  3. HEART MEDICATION [Concomitant]
     Indication: CARDIAC DISORDER
     Route: 048
  4. THYROID MEDICATION [Concomitant]
     Indication: THYROID DISORDER
     Route: 048
  5. SYNTHROID [Concomitant]
  6. LINOXIN [Concomitant]
  7. SIMVASTATIN [Concomitant]
  8. VITAMIN D [Concomitant]
  9. FOLIC ACID [Concomitant]

REACTIONS (5)
  - COUGH [None]
  - DRUG INEFFECTIVE [None]
  - DYSPHONIA [None]
  - DYSPNOEA [None]
  - INCREASED UPPER AIRWAY SECRETION [None]
